FAERS Safety Report 11125776 (Version 1)
Quarter: 2015Q2

REPORT INFORMATION
  Report Type: Spontaneous
  Country: US (occurrence: US)
  Receive Date: 20150520
  Receipt Date: 20150520
  Transmission Date: 20150821
  Serious: Yes (Other)
  Sender: FDA-Public Use
  Company Number: US-SA-2015SA011203

PATIENT

DRUGS (1)
  1. OXALIPLATIN WINTHROP [Suspect]
     Active Substance: OXALIPLATIN
     Route: 065
     Dates: start: 201501

REACTIONS (3)
  - Rash [Unknown]
  - Anaphylactic reaction [Unknown]
  - Swelling [Unknown]

NARRATIVE: CASE EVENT DATE: 201501
